FAERS Safety Report 8611045-X (Version None)
Quarter: 2012Q3

REPORT INFORMATION
  Report Type: 
  Country: None (occurrence: None)
  Receive Date: 20120822
  Receipt Date: 20120816
  Transmission Date: 20120928
  Serious: Yes (Hospitalization)
  Sender: FDA-Public Use
  Company Number: US-PFIZER INC-2012201083

PATIENT
  Age: 88 Year
  Sex: Female
  Weight: 81.179 kg

DRUGS (4)
  1. FUROSEMIDE [Concomitant]
     Indication: MICTURITION DISORDER
     Dosage: 20 MG, DAILY
  2. LYRICA [Suspect]
     Indication: NEUROPATHY PERIPHERAL
     Dosage: 75 MG, 2X/DAY
     Dates: start: 20070101
  3. LEVOTHYROXINE [Concomitant]
     Dosage: 25 MG, DAILY
  4. TAMSULOSIN [Concomitant]
     Indication: MICTURITION DISORDER
     Dosage: 4 MG, DAILY

REACTIONS (2)
  - EXPIRED DRUG ADMINISTERED [None]
  - HERNIA [None]
